FAERS Safety Report 18683707 (Version 4)
Quarter: 2022Q1

REPORT INFORMATION
  Report Type: Spontaneous
  Country: US (occurrence: US)
  Receive Date: 20201230
  Receipt Date: 20220330
  Transmission Date: 20220423
  Serious: No
  Sender: FDA-Public Use
  Company Number: US-PFIZER INC-2020516433

PATIENT
  Age: 59 Year
  Sex: Female

DRUGS (4)
  1. IBRANCE [Suspect]
     Active Substance: PALBOCICLIB
     Indication: Breast cancer female
     Dosage: 75 MG, DAILY (21 DAYS ON AND 7 DAYS OFF)
     Dates: start: 20200505
  2. IBRANCE [Suspect]
     Active Substance: PALBOCICLIB
     Dosage: 75 MG, TAKE FOR 21 DAYS, THEN 7 DAYS OFF AND THEN REPEAT
     Dates: start: 20200519
  3. IBRANCE [Suspect]
     Active Substance: PALBOCICLIB
     Dosage: 100 MG
     Dates: start: 20200709
  4. IBRANCE [Suspect]
     Active Substance: PALBOCICLIB
     Dosage: 75 MG, CYCLIC QD FOR 21 DAYS, THEN TAKE 7 DAYS OFF EVERY 28 DAYS
     Route: 048
     Dates: start: 20210519

REACTIONS (3)
  - Off label use [Unknown]
  - Product dose omission issue [Unknown]
  - Fatigue [Unknown]
